FAERS Safety Report 16290297 (Version 1)
Quarter: 2019Q2

REPORT INFORMATION
  Report Type: Spontaneous
  Country: FR (occurrence: FR)
  Receive Date: 20190509
  Receipt Date: 20190509
  Transmission Date: 20190711
  Serious: Yes (Hospitalization)
  Sender: FDA-Public Use
  Company Number: FR-JNJFOC-20190500063

PATIENT
  Age: 67 Year
  Sex: Male
  Weight: 69 kg

DRUGS (1)
  1. SIMPONI [Suspect]
     Active Substance: GOLIMUMAB
     Indication: AXIAL SPONDYLOARTHRITIS
     Route: 058
     Dates: start: 201901, end: 201903

REACTIONS (1)
  - Hypersensitivity pneumonitis [Recovered/Resolved]

NARRATIVE: CASE EVENT DATE: 20190403
